FAERS Safety Report 8013280-0 (Version None)
Quarter: 2011Q4

REPORT INFORMATION
  Report Type: 
  Country: None (occurrence: None)
  Receive Date: 20111123
  Receipt Date: 20111214
  Transmission Date: 20120403
  Serious: Yes (Hospitalization)
  Sender: FDA-Public Use
  Company Number: 11-814

PATIENT
  Age: 87 Year
  Sex: Female

DRUGS (2)
  1. IBUPROFEN [Suspect]
     Indication: PAIN
     Dosage: 800MG/ BID/ ORAL
     Route: 048
  2. ACETAMINOPHEN [Concomitant]

REACTIONS (1)
  - DUODENAL ULCER PERFORATION [None]
